FAERS Safety Report 5047644-4 (Version None)
Quarter: 2006Q3

REPORT INFORMATION
  Report Type: 
  Country: None (occurrence: None)
  Receive Date: 20060711
  Receipt Date: 20060706
  Transmission Date: 20061208
  Serious: Yes (Death, Hospitalization)
  Sender: FDA-Public Use
  Company Number: PHNU2006DE02475

PATIENT
  Sex: Female

DRUGS (1)
  1. VOLTAREN DOLO [Suspect]
     Indication: BACK PAIN
     Dosage: 0.5 DF, QD
     Route: 048

REACTIONS (25)
  - ABDOMINAL PAIN [None]
  - ALOPECIA [None]
  - ANOREXIA [None]
  - ASTHMA [None]
  - CARDIAC FAILURE [None]
  - DEPRESSION [None]
  - DIARRHOEA [None]
  - DIZZINESS [None]
  - FATIGUE [None]
  - FLATULENCE [None]
  - FLUID RETENTION [None]
  - GASTRIC OPERATION [None]
  - GASTRIC PERFORATION [None]
  - GASTRIC ULCER [None]
  - GASTROINTESTINAL HAEMORRHAGE [None]
  - HAEMATEMESIS [None]
  - HEARING IMPAIRED [None]
  - HEPATITIS [None]
  - INSOMNIA [None]
  - IRRITABILITY [None]
  - LIVER DISORDER [None]
  - NAUSEA [None]
  - OESOPHAGEAL DISORDER [None]
  - TREMOR [None]
  - VOMITING [None]
